FAERS Safety Report 7486352-7 (Version None)
Quarter: 2011Q2

REPORT INFORMATION
  Report Type: 
  Country: None (occurrence: None)
  Receive Date: 20110517
  Receipt Date: 20110509
  Transmission Date: 20111010
  Serious: Yes (Hospitalization)
  Sender: FDA-Public Use
  Company Number: PHHY2011US38828

PATIENT
  Age: 16 Year
  Sex: Male

DRUGS (5)
  1. HALOPERIDOL [Suspect]
     Indication: BRADYKINESIA
     Dosage: 2 MG, BID
  2. DIPHENHYDRAMINE HCL [Suspect]
     Indication: BRADYKINESIA
     Dosage: UNK UKN, UNK
  3. BENZATROPINE [Concomitant]
     Dosage: UNK UKN, UNK
  4. LORAZEPAM [Suspect]
     Indication: BRADYKINESIA
     Dosage: UNK UKN, UNK
  5. ARIPIPRAZOLE [Suspect]
     Indication: BRADYKINESIA
     Dosage: 2.5 MG/DAY

REACTIONS (10)
  - MUSCLE RIGIDITY [None]
  - ENCEPHALITIS ALLERGIC [None]
  - CATATONIA [None]
  - VITAL CAPACITY ABNORMAL [None]
  - AMNESIA [None]
  - HYPERTENSION [None]
  - BRADYKINESIA [None]
  - HYPERHIDROSIS [None]
  - APHASIA [None]
  - TACHYCARDIA [None]
